FAERS Safety Report 18502356 (Version 1)
Quarter: 2020Q4

REPORT INFORMATION
  Report Type: Other
  Country: US (occurrence: US)
  Receive Date: 20201113
  Receipt Date: 20201113
  Transmission Date: 20210114
  Serious: No
  Sender: FDA-Public Use
  Company Number: US-LEADIANT BIOSCIENCES INC-2020STPI000350

PATIENT
  Sex: Female

DRUGS (14)
  1. CYSTAGON [Concomitant]
     Active Substance: CYSTEAMINE BITARTRATE
  2. MULTIVITAMIN [ASCORBIC ACID;BIOTIN;CALCIUM PANTOTHENATE;CYANOCOBALAMIN [Concomitant]
     Active Substance: VITAMINS
  3. PREDNISONE. [Concomitant]
     Active Substance: PREDNISONE
  4. ZOLOFT [Concomitant]
     Active Substance: SERTRALINE HYDROCHLORIDE
  5. METOCLOPRAM [Concomitant]
     Active Substance: METOCLOPRAMIDE
  6. MIRALAX [Concomitant]
     Active Substance: POLYETHYLENE GLYCOL 3350
  7. PANTOPRAZOLE [Concomitant]
     Active Substance: PANTOPRAZOLE
  8. PROGRAF [Concomitant]
     Active Substance: TACROLIMUS
  9. VITAMIN B12 [Concomitant]
     Active Substance: CYANOCOBALAMIN
  10. XANAX [Concomitant]
     Active Substance: ALPRAZOLAM
  11. ALPRAZOLAM. [Concomitant]
     Active Substance: ALPRAZOLAM
  12. AMLODIPINE [Concomitant]
     Active Substance: AMLODIPINE BESYLATE
  13. LABETALOL [Concomitant]
     Active Substance: LABETALOL\LABETALOL HYDROCHLORIDE
  14. CYSTARAN [Suspect]
     Active Substance: CYSTEAMINE HYDROCHLORIDE
     Indication: CYSTINOSIS
     Dosage: 1 DROP, BOTH EYES, EVERY HOUR WHILE AWAKE
     Route: 047
     Dates: start: 20140808

REACTIONS (1)
  - Ocular hyperaemia [Not Recovered/Not Resolved]
